FAERS Safety Report 4893460-3 (Version None)
Quarter: 2006Q1

REPORT INFORMATION
  Report Type: 
  Country: None (occurrence: None)
  Receive Date: 20060127
  Receipt Date: 20060119
  Transmission Date: 20060701
  Serious: Yes (Other)
  Sender: FDA-Public Use
  Company Number: US-JNJFOC-20060104416

PATIENT
  Sex: Female
  Weight: 67.13 kg

DRUGS (7)
  1. DURAGESIC-100 [Suspect]
     Route: 062
  2. DURAGESIC-100 [Suspect]
     Route: 062
  3. DURAGESIC-100 [Suspect]
     Route: 062
  4. XANAX [Concomitant]
     Indication: PANIC ATTACK
     Route: 048
  5. AMBIEN [Concomitant]
     Route: 048
  6. ESTRADIOL INJ [Concomitant]
     Indication: MENOPAUSE
     Route: 048
  7. IBUPROFEN [Concomitant]
     Indication: PAIN
     Route: 048

REACTIONS (5)
  - BACK PAIN [None]
  - BLOOD CHOLESTEROL INCREASED [None]
  - HEADACHE [None]
  - OSTEONECROSIS [None]
  - SINUSITIS [None]
